FAERS Safety Report 15270551 (Version 1)
Quarter: 2018Q3

REPORT INFORMATION
  Report Type: Spontaneous
  Country: DE (occurrence: DE)
  Receive Date: 20180813
  Receipt Date: 20180813
  Transmission Date: 20181010
  Serious: Yes (Other)
  Sender: FDA-Public Use
  Company Number: DE-ABBVIE-18K-062-2448062-00

PATIENT
  Age: 72 Year
  Sex: Male

DRUGS (3)
  1. VENETOCLAX. [Suspect]
     Active Substance: VENETOCLAX
     Indication: CHRONIC LYMPHOCYTIC LEUKAEMIA
     Route: 048
     Dates: start: 201805, end: 2018
  2. VENETOCLAX. [Suspect]
     Active Substance: VENETOCLAX
     Dosage: APPROXIMATELY SIX WEEKS
     Route: 048
     Dates: start: 2018, end: 20180731
  3. ALLOPURINOL. [Concomitant]
     Active Substance: ALLOPURINOL
     Indication: PRODUCT USED FOR UNKNOWN INDICATION

REACTIONS (10)
  - Fall [Unknown]
  - Cellulitis [Recovered/Resolved]
  - Toxicity to various agents [Unknown]
  - Thrombocytopenia [Unknown]
  - Pyrexia [Unknown]
  - White blood cell count increased [Unknown]
  - Sinusitis [Unknown]
  - Neutropenia [Unknown]
  - Lymphocyte count increased [Unknown]
  - Granulocytes abnormal [Unknown]

NARRATIVE: CASE EVENT DATE: 2018
